FAERS Safety Report 5524314-7 (Version None)
Quarter: 2007Q4

REPORT INFORMATION
  Report Type: 
  Country: None (occurrence: None)
  Receive Date: 20071121
  Receipt Date: 20071112
  Transmission Date: 20080405
  Serious: Yes (Other)
  Sender: FDA-Public Use
  Company Number: CA-PFIZER INC-2007095582

PATIENT
  Age: 70 Year
  Sex: Female

DRUGS (2)
  1. PHENYTOIN SUSPENSION [Interacting]
  2. PREDNISONE TAB [Suspect]

REACTIONS (4)
  - ADRENOCORTICAL INSUFFICIENCY ACUTE [None]
  - BLOOD PRESSURE SYSTOLIC DECREASED [None]
  - DRUG INTERACTION [None]
  - LOSS OF CONSCIOUSNESS [None]
